FAERS Safety Report 6306141-6 (Version None)
Quarter: 2009Q3

REPORT INFORMATION
  Report Type: 
  Country: None (occurrence: None)
  Receive Date: 20090810
  Receipt Date: 20090810
  Transmission Date: 20100115
  Serious: No
  Sender: FDA-Public Use
  Company Number: None

PATIENT
  Age: 55 Year
  Sex: Female
  Weight: 81.6475 kg

DRUGS (2)
  1. ZICAM COLD REMEDY GEL SWAB ZINCUM GLUCONICUM 2X MATRIXX INITIATIVES, I [Suspect]
     Indication: NASOPHARYNGITIS
     Dosage: 1 GEL SWAB 2 X DAY
     Dates: start: 20090101, end: 20090601
  2. ZICAM NO-DRIP LIQUID NASAL GEL ZINCUM GLUCONICUM 2 X MATRIXX INITIATIV [Suspect]
     Dosage: 1 NASAL SPRAY 2 X DAY
     Route: 045
     Dates: start: 20090101, end: 20090601

REACTIONS (1)
  - ANOSMIA [None]
